FAERS Safety Report 5325226-4 (Version None)
Quarter: 2007Q2

REPORT INFORMATION
  Report Type: 
  Country: None (occurrence: None)
  Receive Date: 20070515
  Receipt Date: 20070507
  Transmission Date: 20071010
  Serious: Yes (Hospitalization)
  Sender: FDA-Public Use
  Company Number: AU-AVENTIS-200714109GDDC

PATIENT
  Age: 69 Year
  Sex: Male

DRUGS (7)
  1. LANTUS [Suspect]
     Dates: start: 20000601
  2. ASTRIX [Concomitant]
     Dosage: DOSE: UNK
  3. NORVASC [Concomitant]
     Dosage: DOSE: UNK
  4. BACLOFEN [Concomitant]
     Dosage: DOSE: UNK
  5. MINAX [Concomitant]
     Dosage: DOSE: UNK
  6. NEXIUM [Concomitant]
     Dosage: DOSE: UNK
  7. UNKNOWN DRUG [Concomitant]
     Dosage: DOSE: UNK

REACTIONS (1)
  - CEREBROVASCULAR ACCIDENT [None]
